FAERS Safety Report 4983197-4 (Version None)
Quarter: 2006Q2

REPORT INFORMATION
  Report Type: 
  Country: None (occurrence: None)
  Receive Date: 20060426
  Receipt Date: 20060424
  Transmission Date: 20061013
  Serious: Yes (Hospitalization)
  Sender: FDA-Public Use
  Company Number: FR-GLAXOSMITHKLINE-B0421075A

PATIENT
  Age: 35 Year
  Sex: Male

DRUGS (1)
  1. ZINNAT [Suspect]
     Indication: BRONCHITIS
     Dosage: 1UNIT PER DAY
     Route: 048
     Dates: start: 20021030, end: 20021108

REACTIONS (5)
  - EYELID OEDEMA [None]
  - FACE OEDEMA [None]
  - PAINFUL RESPIRATION [None]
  - PYREXIA [None]
  - URTICARIA GENERALISED [None]
